FAERS Safety Report 25311146 (Version 1)
Quarter: 2025Q2

REPORT INFORMATION
  Report Type: Spontaneous
  Country: US (occurrence: US)
  Receive Date: 20250514
  Receipt Date: 20250514
  Transmission Date: 20250716
  Serious: Yes (Other)
  Sender: ALEXION PHARMACEUTICALS
  Company Number: US-AstraZeneca-CH-00867973AP

PATIENT
  Age: 75 Year

DRUGS (3)
  1. BREZTRI [Suspect]
     Active Substance: BUDESONIDE\FORMOTEROL\GLYCOPYRROLATE
     Indication: Lung disorder
     Route: 065
  2. BREZTRI [Suspect]
     Active Substance: BUDESONIDE\FORMOTEROL\GLYCOPYRROLATE
     Indication: Wheezing
  3. BREZTRI [Suspect]
     Active Substance: BUDESONIDE\FORMOTEROL\GLYCOPYRROLATE
     Indication: Cough

REACTIONS (6)
  - Lung neoplasm malignant [Unknown]
  - Lung disorder [Unknown]
  - Condition aggravated [Unknown]
  - Stress [Unknown]
  - Asthenia [Unknown]
  - Device malfunction [Unknown]
